FAERS Safety Report 6242601-4 (Version None)
Quarter: 2009Q2

REPORT INFORMATION
  Report Type: 
  Country: None (occurrence: None)
  Receive Date: 20090617
  Receipt Date: 20071126
  Transmission Date: 20091009
  Serious: No
  Sender: FDA-Public Use
  Company Number: 269783

PATIENT
  Sex: Male

DRUGS (6)
  1. LEVEMIR [Suspect]
     Indication: DIABETES MELLITUS
     Dosage: SUBCUTANEOUS
     Route: 058
  2. AMARYL [Concomitant]
  3. LOPID [Concomitant]
  4. METFORMIN HCL [Concomitant]
  5. METOPROLOL SUCCINATE [Concomitant]
  6. MONOPRIL [Concomitant]

REACTIONS (1)
  - PRURITUS GENERALISED [None]
